FAERS Safety Report 12457247 (Version 1)
Quarter: 2016Q2

REPORT INFORMATION
  Report Type: Other
  Country: US (occurrence: US)
  Receive Date: 20160610
  Receipt Date: 20160610
  Transmission Date: 20160815
  Serious: No
  Sender: FDA-Public Use
  Company Number: US-TRIS PHARMA, INC.-1053687

PATIENT
  Age: 64 Year
  Sex: Male
  Weight: 109.09 kg

DRUGS (3)
  1. DEXTROMETHORPHAN POLISTIREX ER OS [Suspect]
     Active Substance: DEXTROMETHORPHAN HYDROBROMIDE
     Indication: COUGH
     Route: 048
     Dates: start: 201604, end: 201604
  2. DEXTROMETHORPHAN POLISTIREX ER OS [Suspect]
     Active Substance: DEXTROMETHORPHAN HYDROBROMIDE
     Indication: RHINORRHOEA
     Route: 048
     Dates: start: 201604, end: 201604
  3. DEXTROMETHORPHAN POLISTIREX ER OS [Suspect]
     Active Substance: DEXTROMETHORPHAN HYDROBROMIDE
     Indication: SNEEZING
     Route: 048
     Dates: start: 201604, end: 201604

REACTIONS (3)
  - Product contamination physical [None]
  - Drug ineffective [None]
  - Liquid product physical issue [None]
